FAERS Safety Report 5903155-2 (Version None)
Quarter: 2008Q3

REPORT INFORMATION
  Report Type: 
  Country: None (occurrence: None)
  Receive Date: 20080930
  Receipt Date: 20080924
  Transmission Date: 20090109
  Serious: Yes (Life-Threatening, Hospitalization, Other)
  Sender: FDA-Public Use
  Company Number: US-ABBOTT-08P-163-0478140-00

PATIENT
  Sex: Female

DRUGS (22)
  1. HUMIRA [Suspect]
     Indication: RHEUMATOID ARTHRITIS
     Route: 058
     Dates: start: 20060101, end: 20071001
  2. METOPROLOL [Concomitant]
     Indication: CARDIAC DISORDER
     Route: 048
  3. CLOPIDOGREL [Concomitant]
     Indication: CORONARY ARTERIAL STENT INSERTION
     Route: 048
  4. HYDROCHLOROTHIAZIDE [Concomitant]
     Indication: HYPERTENSION
     Route: 048
  5. SIMVASTATIN [Concomitant]
     Indication: BLOOD CHOLESTEROL INCREASED
     Route: 048
  6. CELECOXIB [Concomitant]
     Indication: RHEUMATOID ARTHRITIS
     Route: 048
  7. OMEPRAZOLE [Concomitant]
     Indication: GASTRIC DISORDER
     Route: 048
  8. ALPRAZOLAM [Concomitant]
     Indication: INSOMNIA
     Route: 048
  9. VITAMIN CAP [Concomitant]
     Indication: ROUTINE HEALTH MAINTENANCE
     Route: 048
  10. NICOTINIC ACID [Concomitant]
     Indication: ROUTINE HEALTH MAINTENANCE
     Route: 048
  11. FOLIC ACID [Concomitant]
     Indication: ROUTINE HEALTH MAINTENANCE
     Route: 048
  12. ASCORBIC ACID [Concomitant]
     Indication: ROUTINE HEALTH MAINTENANCE
     Route: 048
  13. ERGOCALCIFEROL [Concomitant]
     Indication: ROUTINE HEALTH MAINTENANCE
     Route: 048
  14. CYANOCOBALAMIN [Concomitant]
     Indication: ROUTINE HEALTH MAINTENANCE
     Route: 048
  15. ANTIOXIDANT [Concomitant]
     Indication: ROUTINE HEALTH MAINTENANCE
     Route: 048
  16. ACAI [Concomitant]
     Indication: ROUTINE HEALTH MAINTENANCE
     Route: 048
  17. LYSINE [Concomitant]
     Indication: ROUTINE HEALTH MAINTENANCE
     Route: 048
  18. MAGNESIUM SULFATE [Concomitant]
     Indication: ROUTINE HEALTH MAINTENANCE
     Route: 048
  19. FISH OIL [Concomitant]
     Indication: ROUTINE HEALTH MAINTENANCE
     Route: 048
  20. CALCIUM [Concomitant]
     Indication: ROUTINE HEALTH MAINTENANCE
     Route: 048
  21. POTASSIUM CHLORIDE [Concomitant]
     Indication: ROUTINE HEALTH MAINTENANCE
     Route: 048
  22. ACIDDOPHYLIS [Concomitant]
     Indication: ROUTINE HEALTH MAINTENANCE
     Route: 048

REACTIONS (11)
  - BASAL CELL CARCINOMA [None]
  - CYSTITIS [None]
  - EAR INFECTION [None]
  - HERPES ZOSTER [None]
  - KIDNEY INFECTION [None]
  - NEUTROPENIA [None]
  - NON-HODGKIN'S LYMPHOMA [None]
  - OROPHARYNGEAL PAIN [None]
  - PHARYNGITIS [None]
  - STAPHYLOCOCCAL INFECTION [None]
  - WOUND INFECTION [None]
